FAERS Safety Report 7677744-1 (Version None)
Quarter: 2011Q3

REPORT INFORMATION
  Report Type: 
  Country: None (occurrence: None)
  Receive Date: 20110811
  Receipt Date: 20110802
  Transmission Date: 20111222
  Serious: Yes (Hospitalization)
  Sender: FDA-Public Use
  Company Number: JP-PFIZER INC-2011154980

PATIENT
  Age: 61 Year
  Sex: Male

DRUGS (3)
  1. ZITHROMAX [Suspect]
     Indication: PYREXIA
     Dosage: 2 G, 1X/DAY
     Route: 048
     Dates: start: 20110607, end: 20110601
  2. BISOLVON [Suspect]
     Dosage: 4 MG, 3X/DAY
     Dates: start: 20110607, end: 20110610
  3. ASTOMIN [Suspect]
     Dosage: 20 MG, 3X/DAY
     Dates: start: 20110607, end: 20110610

REACTIONS (1)
  - GRANULOCYTOPENIA [None]
